FAERS Safety Report 9436392 (Version 1)
Quarter: 2013Q3

REPORT INFORMATION
  Report Type: Spontaneous
  Country: US (occurrence: US)
  Receive Date: 20130802
  Receipt Date: 20130802
  Transmission Date: 20140515
  Serious: No
  Sender: FDA-Public Use
  Company Number: US-BIOGENIDEC-2013BI070810

PATIENT
  Sex: Female

DRUGS (1)
  1. TYSABRI [Suspect]
     Indication: MULTIPLE SCLEROSIS
     Route: 042
     Dates: start: 20090317

REACTIONS (7)
  - Hypersomnia [Unknown]
  - Depressed mood [Unknown]
  - Feeling abnormal [Unknown]
  - Frustration [Unknown]
  - Fatigue [Unknown]
  - Asthenia [Unknown]
  - Drug effect decreased [Unknown]
